FAERS Safety Report 18214091 (Version 2)
Quarter: 2020Q4

REPORT INFORMATION
  Report Type: Spontaneous
  Country: JP (occurrence: JP)
  Receive Date: 20200831
  Receipt Date: 20201007
  Transmission Date: 20210113
  Serious: Yes (Life-Threatening)
  Sender: FDA-Public Use
  Company Number: JP-PFIZER INC-2020332734

PATIENT
  Age: 72 Year
  Sex: Female

DRUGS (6)
  1. RHEUMATREX [Suspect]
     Active Substance: METHOTREXATE SODIUM
     Indication: RHEUMATOID ARTHRITIS
     Dosage: 10 MG (5 CAPSULES), WEEKLY
     Route: 048
     Dates: start: 200807, end: 20200317
  2. MUCOSTA [Concomitant]
     Active Substance: REBAMIPIDE
  3. FOLIAMIN [Concomitant]
     Active Substance: FOLIC ACID
  4. FOSAMAC [Concomitant]
     Active Substance: ALENDRONATE SODIUM
  5. EDIROL [Concomitant]
     Active Substance: ELDECALCITOL
  6. HUMIRA [Suspect]
     Active Substance: ADALIMUMAB
     Indication: RHEUMATOID ARTHRITIS
     Dosage: 1 DF, EVERY 2 WEEKS
     Route: 058
     Dates: start: 201308, end: 20200317

REACTIONS (6)
  - Lymphoma [Recovered/Resolved]
  - Abdominal pain upper [Recovered/Resolved]
  - Back pain [Recovered/Resolved]
  - Dizziness [Recovered/Resolved with Sequelae]
  - Weight decreased [Recovered/Resolved]
  - Pyrexia [Unknown]

NARRATIVE: CASE EVENT DATE: 20200409
